FAERS Safety Report 9370165 (Version 1)
Quarter: 2013Q2

REPORT INFORMATION
  Report Type: Spontaneous
  Country: IE (occurrence: IE)
  Receive Date: 20130626
  Receipt Date: 20130626
  Transmission Date: 20140414
  Serious: Yes (Hospitalization)
  Sender: FDA-Public Use
  Company Number: IE-TEVA-413523ISR

PATIENT
  Age: 72 Year
  Sex: Male

DRUGS (11)
  1. CIPROFLOXACIN [Suspect]
     Indication: LOWER RESPIRATORY TRACT INFECTION
     Dosage: 1000 MILLIGRAM DAILY;
     Route: 065
  2. ESOMEPRAZOLE [Concomitant]
     Indication: DYSPEPSIA
     Route: 065
  3. ALFACALCIDOL [Concomitant]
     Route: 065
  4. PREGABALIN [Concomitant]
     Route: 065
  5. ASPIRIN [Concomitant]
     Route: 065
  6. ATORVASTATIN [Concomitant]
     Route: 065
  7. FOLIC ACID [Concomitant]
     Route: 065
  8. SEVELAMER [Concomitant]
     Route: 065
  9. CALCIUM ACETATE [Concomitant]
     Route: 065
  10. GLICLAZIDE [Concomitant]
     Dosage: PROLONGED RELEASE
     Route: 065
  11. DARBEPOETIN ALFA [Concomitant]
     Route: 065

REACTIONS (1)
  - Choreoathetosis [Recovered/Resolved]
